FAERS Safety Report 10029380 (Version 3)
Quarter: 2014Q2

REPORT INFORMATION
  Report Type: Spontaneous
  Country: FR (occurrence: FR)
  Receive Date: 20140322
  Receipt Date: 20140521
  Transmission Date: 20141212
  Serious: Yes (Hospitalization)
  Sender: FDA-Public Use
  Company Number: PHHY2014FR031678

PATIENT
  Sex: Female

DRUGS (2)
  1. COTAREG [Suspect]
     Route: 048
     Dates: start: 201306, end: 201401
  2. NORFLOXACIN [Suspect]
     Indication: URINARY TRACT INFECTION
     Dosage: 400 MG, BID
     Route: 048
     Dates: start: 20140123, end: 20140131

REACTIONS (1)
  - Immune thrombocytopenic purpura [Recovered/Resolved]
